FAERS Safety Report 4551533-9 (Version None)
Quarter: 2005Q1

REPORT INFORMATION
  Report Type: 
  Country: None (occurrence: None)
  Receive Date: 20050112
  Receipt Date: 20041230
  Transmission Date: 20050727
  Serious: No
  Sender: FDA-Public Use
  Company Number: 2004-05388

PATIENT
  Sex: Male

DRUGS (1)
  1. MINOXIDIL [Suspect]

REACTIONS (6)
  - CEREBROVASCULAR ACCIDENT [None]
  - HYPERSENSITIVITY [None]
  - NEUROLOGICAL SYMPTOM [None]
  - PARALYSIS [None]
  - PLEURAL EFFUSION [None]
  - RENAL FAILURE [None]
